FAERS Safety Report 6955480-4 (Version None)
Quarter: 2010Q3

REPORT INFORMATION
  Report Type: 
  Country: None (occurrence: None)
  Receive Date: 20100830
  Receipt Date: 20100818
  Transmission Date: 20110219
  Serious: Yes (Death, Other)
  Sender: FDA-Public Use
  Company Number: GB-PFIZER INC-2010078728

PATIENT
  Age: 62 Year
  Sex: Female

DRUGS (1)
  1. TRANEXAMIC ACID [Suspect]
     Indication: HAEMORRHAGE
     Dosage: UNK
     Route: 042
     Dates: start: 20090514, end: 20090521

REACTIONS (2)
  - BRAIN OEDEMA [None]
  - STATUS EPILEPTICUS [None]
